FAERS Safety Report 5405526-X (Version None)
Quarter: 2007Q3

REPORT INFORMATION
  Report Type: 
  Country: None (occurrence: None)
  Receive Date: 20070803
  Receipt Date: 20070730
  Transmission Date: 20080115
  Serious: Yes (Hospitalization, Other)
  Sender: FDA-Public Use
  Company Number: US-MERCK-0707USA05030

PATIENT
  Age: 41 Year
  Sex: Male

DRUGS (7)
  1. INVANZ [Suspect]
     Route: 042
  2. METOPROLOL [Concomitant]
     Route: 065
  3. DIVALPROEX SODIUM [Suspect]
     Route: 065
  4. DIVALPROEX SODIUM [Suspect]
     Route: 065
  5. DIVALPROEX SODIUM [Suspect]
     Route: 048
  6. VALPROIC ACID [Interacting]
     Route: 042
  7. VALPROIC ACID [Interacting]
     Route: 042

REACTIONS (4)
  - CONVULSION [None]
  - DRUG INTERACTION [None]
  - DRUG LEVEL DECREASED [None]
  - GRAND MAL CONVULSION [None]
